FAERS Safety Report 6240800-9 (Version None)
Quarter: 2009Q2

REPORT INFORMATION
  Report Type: 
  Country: None (occurrence: None)
  Receive Date: 20090619
  Receipt Date: 20090605
  Transmission Date: 20091009
  Serious: Yes (Other)
  Sender: FDA-Public Use
  Company Number: LIP09011

PATIENT
  Sex: Male

DRUGS (2)
  1. LIPOFEN [Suspect]
  2. ^A STATIN^ [Concomitant]

REACTIONS (1)
  - BLINDNESS UNILATERAL [None]
